FAERS Safety Report 24570885 (Version 4)
Quarter: 2024Q4

REPORT INFORMATION
  Report Type: Report from Study
  Country: CN (occurrence: CN)
  Receive Date: 20241101
  Receipt Date: 20241227
  Transmission Date: 20250115
  Serious: Yes (Hospitalization, Other)
  Sender: ABBVIE
  Company Number: CN-ABBVIE-5704655

PATIENT
  Age: 83 Year
  Sex: Male
  Weight: 55 kg

DRUGS (12)
  1. RINVOQ [Suspect]
     Active Substance: UPADACITINIB
     Indication: Dermatitis atopic
     Dosage: 15 MILLIGRAM
     Route: 048
     Dates: start: 20240305, end: 20240517
  2. LOSARTAN POTASSIUM [Concomitant]
     Active Substance: LOSARTAN POTASSIUM
     Indication: Hypertension
     Route: 048
     Dates: start: 20231028, end: 20240629
  3. FLUTICASONE [Concomitant]
     Active Substance: FLUTICASONE
     Indication: Dermatitis atopic
     Dosage: 7.5 MILLIGRAM
     Route: 061
     Dates: start: 20240305, end: 20240504
  4. METHYLCOBALAMIN [Concomitant]
     Active Substance: METHYLCOBALAMIN
     Indication: Neuropathy peripheral
     Dosage: 1 CAPSULE
     Route: 048
     Dates: start: 20240823, end: 20241010
  5. NABUMETONE COX [Concomitant]
     Indication: Intervertebral disc protrusion
     Dosage: 2 CAPSULE
     Route: 048
     Dates: start: 20240815, end: 20240819
  6. EZETIMIBE [Concomitant]
     Active Substance: EZETIMIBE
     Indication: Cerebrovascular disorder
     Dosage: 20 MILLIGRAM
     Route: 048
     Dates: start: 2023
  7. ERYTHROMYCIN [Concomitant]
     Active Substance: ERYTHROMYCIN
     Indication: Dermatitis atopic
     Dosage: 0.05 BRANCH
     Route: 061
     Dates: start: 20240811, end: 20240831
  8. Nimodipine juno [Concomitant]
     Indication: Cerebrovascular disorder
     Dosage: TIME INTERVAL: 0.33333333 DAYS: 3 TABLET
     Route: 048
     Dates: start: 20241027
  9. OLMESARTAN CILEXETIL [Concomitant]
     Indication: Hypertension
     Dosage: 1 TABLET
     Route: 048
     Dates: start: 20240815
  10. Qiang li tian ma du zhong [Concomitant]
     Indication: Vertigo
     Dosage: 6 CAPSULE
     Route: 048
     Dates: start: 20240815, end: 20240827
  11. CLOPIDOGREL BISULFATE [Concomitant]
     Active Substance: CLOPIDOGREL BISULFATE
     Indication: Cerebrovascular disorder
     Dosage: 25 MILLIGRAM
     Route: 048
     Dates: start: 2023
  12. Ebanel urea cream [Concomitant]
     Indication: Dermatitis atopic
     Route: 061
     Dates: start: 20240811, end: 20240831

REACTIONS (6)
  - Deafness [Recovering/Resolving]
  - Arthralgia [Recovering/Resolving]
  - Contusion [Recovered/Resolved]
  - Dizziness [Recovering/Resolving]
  - Cerebral artery stenosis [Recovering/Resolving]
  - Cerebral artery stenosis [Recovering/Resolving]

NARRATIVE: CASE EVENT DATE: 20240320
